FAERS Safety Report 15271243 (Version 2)
Quarter: 2018Q4

REPORT INFORMATION
  Report Type: Spontaneous
  Country: US (occurrence: US)
  Receive Date: 20180813
  Receipt Date: 20181017
  Transmission Date: 20190204
  Serious: Yes (Other)
  Sender: FDA-Public Use
  Company Number: US-DSJP-DSU-2017-147288

PATIENT

DRUGS (2)
  1. BENICAR [Suspect]
     Active Substance: OLMESARTAN MEDOXOMIL
     Indication: HYPERTENSION
     Dosage: 20 MG, QD
     Route: 048
  2. BENICAR HCT [Suspect]
     Active Substance: HYDROCHLOROTHIAZIDE\OLMESARTAN MEDOXOMIL
     Indication: BLOOD PRESSURE MEASUREMENT
     Dosage: 20/12.5 MG, QD
     Route: 048
     Dates: start: 20160422, end: 20170905

REACTIONS (6)
  - Gastrooesophageal reflux disease [Recovering/Resolving]
  - Diverticulum intestinal [Unknown]
  - Hiatus hernia [Unknown]
  - Rectal polyp [Recovered/Resolved]
  - Diverticulitis [Recovering/Resolving]
  - Diaphragmatic hernia [Unknown]

NARRATIVE: CASE EVENT DATE: 20040419
